FAERS Safety Report 13163686 (Version 1)
Quarter: 2017Q1

REPORT INFORMATION
  Report Type: Report from Study
  Country: None (occurrence: BR)
  Receive Date: 20170130
  Receipt Date: 20170130
  Transmission Date: 20170428
  Serious: Yes (Hospitalization, Other)
  Sender: FDA-Public Use
  Company Number: BR-ABBVIE-17K-020-1850619-00

PATIENT
  Age: 77 Year
  Sex: Female
  Weight: 48 kg

DRUGS (2)
  1. HUMIRA [Suspect]
     Active Substance: ADALIMUMAB
     Indication: RHEUMATOID ARTHRITIS
     Route: 058
     Dates: start: 20090819
  2. ARAVA [Concomitant]
     Active Substance: LEFLUNOMIDE
     Indication: ARTHRITIS
     Route: 048
     Dates: start: 20090101

REACTIONS (14)
  - Bedridden [Unknown]
  - Pain [Unknown]
  - Fatigue [Unknown]
  - Osteoporosis [Unknown]
  - Myocardial infarction [Unknown]
  - Cardiac arrest [Unknown]
  - Pneumonia [Recovered/Resolved]
  - Limb deformity [Unknown]
  - Myocardial infarction [Unknown]
  - Dyspnoea [Not Recovered/Not Resolved]
  - Vein rupture [Unknown]
  - Spinal osteoarthritis [Unknown]
  - Anaemia [Recovered/Resolved]
  - Myocardial infarction [Recovering/Resolving]

NARRATIVE: CASE EVENT DATE: 201505
